FAERS Safety Report 8163834-6 (Version None)
Quarter: 2012Q1

REPORT INFORMATION
  Report Type: 
  Country: None (occurrence: None)
  Receive Date: 20120224
  Receipt Date: 20120220
  Transmission Date: 20120608
  Serious: Yes (Hospitalization)
  Sender: FDA-Public Use
  Company Number: PHHY2012JP015682

PATIENT
  Age: 80 Year
  Sex: Female

DRUGS (3)
  1. DIOVAN [Suspect]
     Indication: HYPERTENSION
     Dosage: 40 MG, QD
     Route: 048
  2. FAMOTIDINE [Concomitant]
     Dosage: 10 MG, UNK
     Route: 048
  3. SERMION [Concomitant]
     Dosage: 5 MG, UNK
     Route: 048

REACTIONS (1)
  - ACUTE MYOCARDIAL INFARCTION [None]
